FAERS Safety Report 24810566 (Version 1)
Quarter: 2025Q1

REPORT INFORMATION
  Report Type: Spontaneous
  Country: US (occurrence: US)
  Receive Date: 20250106
  Receipt Date: 20250106
  Transmission Date: 20250409
  Serious: Yes (Hospitalization)
  Sender: AMNEAL
  Company Number: US-AMNEAL PHARMACEUTICALS-2024-AMRX-00933

PATIENT
  Age: 32 Year
  Sex: Female
  Weight: 76.463 kg

DRUGS (11)
  1. ACTIVELLA [Suspect]
     Active Substance: ESTRADIOL\NORETHINDRONE ACETATE
     Indication: Endometriosis
     Route: 048
     Dates: start: 20190219, end: 20190319
  2. ELAGOLIX [Suspect]
     Active Substance: ELAGOLIX
     Indication: Endometriosis
     Dosage: 200 MILLIGRAM, 2 /DAY
     Route: 048
     Dates: start: 20180904, end: 20190219
  3. ELAGOLIX [Suspect]
     Active Substance: ELAGOLIX
     Dosage: 200 MILLIGRAM, 2 /DAY
     Route: 048
     Dates: start: 20190219, end: 20190318
  4. PLACEBO [Suspect]
     Active Substance: PLACEBO
     Indication: Endometriosis
     Route: 048
     Dates: start: 20180904, end: 20190219
  5. IBUPROFEN [Concomitant]
     Active Substance: IBUPROFEN
     Indication: Endometriosis
     Route: 065
     Dates: start: 2014, end: 20180709
  6. IBUPROFEN [Concomitant]
     Active Substance: IBUPROFEN
     Indication: Headache
     Route: 065
     Dates: start: 2000
  7. IBUPROFEN [Concomitant]
     Active Substance: IBUPROFEN
     Route: 065
     Dates: start: 20180709, end: 20180709
  8. IBUPROFEN [Concomitant]
     Active Substance: IBUPROFEN
     Route: 065
     Dates: start: 20181104, end: 20181104
  9. IBUPROFEN [Concomitant]
     Active Substance: IBUPROFEN
     Route: 065
     Dates: start: 20181226, end: 20190103
  10. ALBUTEROL [Concomitant]
     Active Substance: ALBUTEROL
     Indication: Asthma
     Route: 065
     Dates: start: 1991
  11. PROAIR HFA [Concomitant]
     Active Substance: ALBUTEROL SULFATE
     Indication: Asthma
     Route: 065
     Dates: start: 2010

REACTIONS (2)
  - Endometriosis [Recovered/Resolved]
  - Drug ineffective [Unknown]

NARRATIVE: CASE EVENT DATE: 20190220
